FAERS Safety Report 5304443-3 (Version None)
Quarter: 2007Q2

REPORT INFORMATION
  Report Type: 
  Country: None (occurrence: None)
  Receive Date: 20070423
  Receipt Date: 20070412
  Transmission Date: 20071010
  Serious: Yes (Hospitalization)
  Sender: FDA-Public Use
  Company Number: HQWYE426213APR07

PATIENT
  Age: 73 Year
  Sex: Male

DRUGS (7)
  1. INIPOMP [Suspect]
     Route: 048
     Dates: start: 20070123, end: 20070223
  2. ODRIK [Suspect]
     Route: 048
     Dates: start: 20070123, end: 20070227
  3. EPOGEN [Concomitant]
     Dosage: DOSE AND FREQUENCY UNSPECIFIED
  4. KARDEGIC [Concomitant]
     Dates: start: 20070123, end: 20070101
  5. LANSOPRAZOLE [Concomitant]
     Dosage: DF
     Dates: end: 20070122
  6. PLAVIX [Suspect]
     Indication: ANGINA PECTORIS
     Route: 048
     Dates: start: 20070123, end: 20070223
  7. ALLOPURINOL [Concomitant]
     Route: 048
     Dates: start: 20050615, end: 20070223

REACTIONS (3)
  - AGRANULOCYTOSIS [None]
  - CHEST PAIN [None]
  - DYSPNOEA [None]
